FAERS Safety Report 4702029-2 (Version None)
Quarter: 2005Q2

REPORT INFORMATION
  Report Type: 
  Country: None (occurrence: None)
  Receive Date: 20050627
  Receipt Date: 20050613
  Transmission Date: 20051028
  Serious: Yes (Hospitalization, Other)
  Sender: FDA-Public Use
  Company Number: 2005BI009858

PATIENT
  Sex: Female

DRUGS (1)
  1. AVONEX [Suspect]
     Indication: MULTIPLE SCLEROSIS
     Dosage: UNKNOWN; IM
     Route: 030
     Dates: start: 20050401

REACTIONS (6)
  - DEHYDRATION [None]
  - FATIGUE [None]
  - GALLBLADDER DISORDER [None]
  - IATROGENIC INJURY [None]
  - INTESTINAL PERFORATION [None]
  - LIVER DISORDER [None]
